FAERS Safety Report 10214785 (Version 1)
Quarter: 2014Q2

REPORT INFORMATION
  Report Type: Spontaneous
  Country: US (occurrence: US)
  Receive Date: 20140603
  Receipt Date: 20140603
  Transmission Date: 20141212
  Serious: Yes (Hospitalization)
  Sender: FDA-Public Use
  Company Number: US-ELI_LILLY_AND_COMPANY-US201405008631

PATIENT
  Age: 35 Year
  Sex: Male

DRUGS (5)
  1. ZYPREXA [Suspect]
     Indication: BIPOLAR DISORDER
     Dosage: 10 MG, UNKNOWN
     Route: 065
  2. ZYPREXA [Suspect]
     Indication: SCHIZOAFFECTIVE DISORDER
     Dosage: 15 MG, UNKNOWN
     Route: 065
  3. ZYPREXA ZYDIS [Suspect]
     Indication: BIPOLAR DISORDER
     Dosage: 10 MG, UNKNOWN
     Route: 065
  4. ZYPREXA ZYDIS [Suspect]
     Indication: SCHIZOAFFECTIVE DISORDER
     Dosage: 10 MG, UNKNOWN
     Route: 065
  5. ADDERALL [Suspect]
     Indication: PRODUCT USED FOR UNKNOWN INDICATION
     Dosage: UNK, UNKNOWN
     Route: 065

REACTIONS (3)
  - Hallucination [Unknown]
  - Lethargy [Unknown]
  - Weight increased [Unknown]
